FAERS Safety Report 9712204 (Version 2)
Quarter: 2013Q4

REPORT INFORMATION
  Report Type: Spontaneous
  Country: US (occurrence: US)
  Receive Date: 20131126
  Receipt Date: 20131126
  Transmission Date: 20140711
  Serious: No
  Sender: FDA-Public Use
  Company Number: US-BRISTOL-MYERS SQUIBB COMPANY-19146927

PATIENT
  Age: 61 Year
  Sex: Female
  Weight: 120.18 kg

DRUGS (14)
  1. BYDUREON [Suspect]
     Indication: TYPE 2 DIABETES MELLITUS
     Dosage: EXPIRATION DATE:FEB2016
     Route: 058
     Dates: start: 20130727
  2. METFORMIN [Concomitant]
     Indication: TYPE 2 DIABETES MELLITUS
     Route: 048
  3. PLAVIX [Concomitant]
     Indication: TRANSIENT ISCHAEMIC ATTACK
     Route: 048
  4. FUROSEMIDE [Concomitant]
     Route: 048
  5. ALENDRONATE [Concomitant]
     Indication: OSTEOPOROSIS
     Route: 048
  6. ASPIRIN [Concomitant]
     Route: 048
  7. ACTOS [Concomitant]
     Indication: TYPE 2 DIABETES MELLITUS
     Route: 048
  8. ZETIA [Concomitant]
     Route: 048
  9. ATORVASTATIN [Concomitant]
     Indication: BLOOD CHOLESTEROL INCREASED
     Route: 048
  10. CALCIUM [Concomitant]
     Dosage: 2 TABS
     Route: 048
  11. VITAMIN D3 [Concomitant]
     Route: 048
  12. LIPITOR [Concomitant]
  13. JANUVIA [Concomitant]
  14. FOSAMAX [Concomitant]

REACTIONS (2)
  - Injection site haemorrhage [Recovered/Resolved]
  - Injection site discolouration [Not Recovered/Not Resolved]
